FAERS Safety Report 5759437-0 (Version None)
Quarter: 2008Q2

REPORT INFORMATION
  Report Type: 
  Country: None (occurrence: None)
  Receive Date: 20080604
  Receipt Date: 20080604
  Transmission Date: 20081010
  Serious: Yes (Disabling, Other)
  Sender: FDA-Public Use
  Company Number: None

PATIENT
  Age: 70 Year
  Sex: Male
  Weight: 91.6266 kg

DRUGS (1)
  1. CHANTIX [Suspect]
     Indication: SMOKING CESSATION THERAPY
     Dosage: 1 TAB 3 TIMES DAILY ORAL
     Route: 048
     Dates: start: 20070407, end: 20070707

REACTIONS (11)
  - AGEUSIA [None]
  - ANOSMIA [None]
  - ASTHENIA [None]
  - BASAL GANGLION DEGENERATION [None]
  - DEPRESSION [None]
  - DRY MOUTH [None]
  - DYSKINESIA [None]
  - IRRITABILITY [None]
  - NIGHTMARE [None]
  - TREMOR [None]
  - WEIGHT DECREASED [None]
